FAERS Safety Report 24374953 (Version 5)
Quarter: 2025Q3

REPORT INFORMATION
  Report Type: Report from Study
  Country: US (occurrence: US)
  Receive Date: 20240927
  Receipt Date: 20250910
  Transmission Date: 20251020
  Serious: Yes (Other)
  Sender: MERCK SHARP & DOHME LLC
  Company Number: None

PATIENT
  Sex: Male
  Weight: 106.59 kg

DRUGS (36)
  1. WINREVAIR [Suspect]
     Active Substance: SOTATERCEPT-CSRK
     Indication: Pulmonary hypertension
     Dosage: 1.6 ML, ADMINISTERED SUBCUTANEOUSLY, EVERY 3 WEEKS
     Route: 058
     Dates: start: 20240917
  2. WINREVAIR [Suspect]
     Active Substance: SOTATERCEPT-CSRK
  3. WINREVAIR [Suspect]
     Active Substance: SOTATERCEPT-CSRK
  4. WINREVAIR [Suspect]
     Active Substance: SOTATERCEPT-CSRK
  5. WINREVAIR [Suspect]
     Active Substance: SOTATERCEPT-CSRK
     Indication: Pulmonary hypertension
     Dosage: BACK TO STARTING DOSE:0.3 MG/KG, DOSE 0.7 ML EVERY 21 DAYS??CONCENTRATION: 45 MILLIGRAM
     Route: 058
     Dates: start: 2024
  6. WINREVAIR [Suspect]
     Active Substance: SOTATERCEPT-CSRK
     Dosage: FIRST DOSE UNK, THEN BEEN ON A TARGET DOSE SINCE THE SECOND DOSE OF SOTATERCEPT (WINREVAIR) AND H...
     Dates: start: 2024
  7. WINREVAIR [Suspect]
     Active Substance: SOTATERCEPT-CSRK
  8. WINREVAIR [Suspect]
     Active Substance: SOTATERCEPT-CSRK
  9. WINREVAIR [Suspect]
     Active Substance: SOTATERCEPT-CSRK
  10. WINREVAIR [Suspect]
     Active Substance: SOTATERCEPT-CSRK
  11. WINREVAIR [Suspect]
     Active Substance: SOTATERCEPT-CSRK
  12. WINREVAIR [Suspect]
     Active Substance: SOTATERCEPT-CSRK
  13. REMODULIN [Suspect]
     Active Substance: TREPROSTINIL
     Indication: Pulmonary arterial hypertension
     Route: 058
  14. REMODULIN [Suspect]
     Active Substance: TREPROSTINIL
     Indication: Pulmonary arterial hypertension
     Route: 058
     Dates: start: 20231102
  15. DOCUSATE SODIUM [Concomitant]
     Active Substance: DOCUSATE SODIUM
  16. PREDNISONE [Concomitant]
     Active Substance: PREDNISONE
  17. COLCHICINE [Concomitant]
     Active Substance: COLCHICINE
  18. SODIUM CHLORIDE [Concomitant]
     Active Substance: SODIUM CHLORIDE
  19. PRADAXA [Concomitant]
     Active Substance: DABIGATRAN ETEXILATE MESYLATE
  20. GABAPENTIN [Concomitant]
     Active Substance: GABAPENTIN
  21. SILDENAFIL CITRATE [Concomitant]
     Active Substance: SILDENAFIL CITRATE
  22. ABIRATERONE ACETATE [Concomitant]
     Active Substance: ABIRATERONE ACETATE
  23. OPSUMIT [Concomitant]
     Active Substance: MACITENTAN
  24. MULTIVITAMINS TABLET [Concomitant]
  25. CALCIUM [Concomitant]
     Active Substance: CALCIUM
  26. OXYGEN [Concomitant]
     Active Substance: OXYGEN
  27. FUROSEMIDE [Concomitant]
     Active Substance: FUROSEMIDE
  28. VITAMIN D3 [Concomitant]
     Active Substance: CHOLECALCIFEROL
  29. POTASSIUM CHLORIDE [Concomitant]
     Active Substance: POTASSIUM CHLORIDE
  30. KETAMINE HYDROCHLORIDE [Concomitant]
     Active Substance: KETAMINE HYDROCHLORIDE
  31. LECITHIN [GLYCINE MAX EXTRACT] [Concomitant]
  32. CLONIDINE HYDROCHLORIDE [Concomitant]
     Active Substance: CLONIDINE HYDROCHLORIDE
  33. KETOPROFEN [Concomitant]
     Active Substance: KETOPROFEN
  34. LIDOCAINE HYDROCHLORIDE [Concomitant]
     Active Substance: LIDOCAINE HYDROCHLORIDE
  35. AMITRIPTYLINE HYDROCHLORIDE [Concomitant]
     Active Substance: AMITRIPTYLINE HYDROCHLORIDE
  36. POLOXAMER [Concomitant]
     Active Substance: POLOXAMER

REACTIONS (6)
  - Platelet count decreased [Recovered/Resolved]
  - Device physical property issue [Unknown]
  - Product contamination [Unknown]
  - Adverse event [Unknown]
  - Needle issue [Unknown]
  - Poor quality device used [Unknown]

NARRATIVE: CASE EVENT DATE: 20240101
